FAERS Safety Report 11944956 (Version 1)
Quarter: 2016Q1

REPORT INFORMATION
  Report Type: Spontaneous
  Country: FR (occurrence: FR)
  Receive Date: 20160125
  Receipt Date: 20160125
  Transmission Date: 20160526
  Serious: Yes (Other)
  Sender: FDA-Public Use
  Company Number: FR-PFIZER INC-2016026405

PATIENT
  Age: 3 Year
  Sex: Male
  Weight: 14 kg

DRUGS (3)
  1. ADVILMED ENFANTS ET NOURRISSONS [Suspect]
     Active Substance: IBUPROFEN
     Indication: PYREXIA
     Dosage: 1 DF, 3X/DAY
     Route: 048
     Dates: start: 20151218
  2. NUROFENPRO [Interacting]
     Active Substance: IBUPROFEN
     Indication: PYREXIA
     Dosage: 1 DF, 3X/DAY
     Route: 048
     Dates: start: 20151219, end: 20151221
  3. AMOXICILLIN. [Concomitant]
     Active Substance: AMOXICILLIN
     Dosage: 30 MG/KG, UNK
     Dates: start: 20151219

REACTIONS (6)
  - Decreased appetite [Unknown]
  - Tonsillitis [Recovered/Resolved]
  - Angina pectoris [Unknown]
  - Weight decreased [Unknown]
  - Condition aggravated [Recovered/Resolved]
  - Drug interaction [Recovered/Resolved]

NARRATIVE: CASE EVENT DATE: 20151222
